FAERS Safety Report 11854894 (Version 1)
Quarter: 2015Q4

REPORT INFORMATION
  Report Type: Spontaneous
  Country: US (occurrence: US)
  Receive Date: 20151221
  Receipt Date: 20151221
  Transmission Date: 20160305
  Serious: Yes (Other)
  Sender: FDA-Public Use
  Company Number: US-ROCHE-1678807

PATIENT
  Sex: Female

DRUGS (1)
  1. PULMOZYME [Suspect]
     Active Substance: DORNASE ALFA
     Indication: TRISOMY 18
     Route: 065

REACTIONS (9)
  - Hypersensitivity [Unknown]
  - Pain [Not Recovered/Not Resolved]
  - Heart rate increased [Unknown]
  - Hyperhidrosis [Unknown]
  - Oxygen saturation decreased [Recovered/Resolved]
  - Somnolence [Unknown]
  - Rib deformity [Unknown]
  - Increased viscosity of bronchial secretion [Recovered/Resolved]
  - Enterovirus infection [Unknown]
